FAERS Safety Report 6145016-2 (Version None)
Quarter: 2009Q2

REPORT INFORMATION
  Report Type: 
  Country: None (occurrence: None)
  Receive Date: 20090406
  Receipt Date: 20090326
  Transmission Date: 20091009
  Serious: Yes (Hospitalization, Other)
  Sender: FDA-Public Use
  Company Number: BE-MEDIMMUNE-MEDI-0008282

PATIENT
  Sex: Male
  Weight: 1.1 kg

DRUGS (2)
  1. SYNAGIS [Suspect]
     Indication: ANTIVIRAL PROPHYLAXIS
     Dates: start: 20081009, end: 20081109
  2. SYNAGIS [Suspect]
     Dates: start: 20081009

REACTIONS (2)
  - RESPIRATORY ARREST [None]
  - RESPIRATORY SYNCYTIAL VIRUS BRONCHIOLITIS [None]
